FAERS Safety Report 5652546-6 (Version None)
Quarter: 2008Q1

REPORT INFORMATION
  Report Type: 
  Country: None (occurrence: None)
  Receive Date: 20080306
  Receipt Date: 20080229
  Transmission Date: 20080703
  Serious: Yes (Hospitalization)
  Sender: FDA-Public Use
  Company Number: US-BRISTOL-MYERS SQUIBB COMPANY-14098545

PATIENT
  Age: 31 Year
  Sex: Male

DRUGS (1)
  1. ARIPIPRAZOLE [Suspect]
     Indication: SCHIZOPHRENIA
     Dosage: INCREASED STEPWISE TO 60 MG/DAY,WAS REDUCED TO 15 MG/DAY

REACTIONS (2)
  - DRUG LEVEL INCREASED [None]
  - SCHIZOPHRENIA [None]
